FAERS Safety Report 8409775-8 (Version None)
Quarter: 2012Q2

REPORT INFORMATION
  Report Type: 
  Country: None (occurrence: None)
  Receive Date: 20120605
  Receipt Date: 20120529
  Transmission Date: 20120825
  Serious: Yes (Other)
  Sender: FDA-Public Use
  Company Number: US-BAYER-2011-105600

PATIENT
  Age: 18 Year
  Sex: Female
  Weight: 61.678 kg

DRUGS (3)
  1. YAZ [Suspect]
  2. ANTACIDS [Concomitant]
  3. BENTYL [Concomitant]

REACTIONS (5)
  - GALLBLADDER DISORDER [None]
  - BILIARY DYSKINESIA [None]
  - BILIARY FIBROSIS [None]
  - FEAR [None]
  - PAIN [None]
